FAERS Safety Report 9784413 (Version 1)
Quarter: 2013Q4

REPORT INFORMATION
  Report Type: Spontaneous
  Country: US (occurrence: US)
  Receive Date: 20131226
  Receipt Date: 20131226
  Transmission Date: 20140711
  Serious: No
  Sender: FDA-Public Use
  Company Number: US-BIOGENIDEC-2013BI122555

PATIENT
  Sex: Female

DRUGS (6)
  1. TECFIDERA [Suspect]
     Indication: MULTIPLE SCLEROSIS
     Route: 048
     Dates: start: 20131023, end: 20131209
  2. BACLOFEN [Concomitant]
  3. CLONAZEPAM [Concomitant]
  4. LEXAPRO [Concomitant]
  5. METOPROLOL TARTRATE [Concomitant]
  6. PRAVASTATIN SODIUM [Concomitant]

REACTIONS (2)
  - Gait disturbance [Unknown]
  - Asthenia [Unknown]
